FAERS Safety Report 10884682 (Version 1)
Quarter: 2015Q1

REPORT INFORMATION
  Report Type: Spontaneous
  Country: US (occurrence: US)
  Receive Date: 20150304
  Receipt Date: 20150304
  Transmission Date: 20150721
  Serious: Yes (Life-Threatening, Hospitalization)
  Sender: FDA-Public Use
  Company Number: US-BAYER-2015-031646

PATIENT
  Age: 23 Year
  Sex: Female

DRUGS (1)
  1. MIRENA [Suspect]
     Active Substance: LEVONORGESTREL
     Dosage: 20 MCG/24HR, CONT
     Route: 015
     Dates: start: 201203, end: 20120731

REACTIONS (8)
  - Injury [None]
  - Infection [None]
  - General physical health deterioration [None]
  - Anxiety [None]
  - Anhedonia [None]
  - Emotional distress [None]
  - Abdominal pain [None]
  - Uterine perforation [None]

NARRATIVE: CASE EVENT DATE: 20120730
